FAERS Safety Report 12515288 (Version 3)
Quarter: 2016Q3

REPORT INFORMATION
  Report Type: Spontaneous
  Country: JP (occurrence: JP)
  Receive Date: 20160630
  Receipt Date: 20160729
  Transmission Date: 20161109
  Serious: No
  Sender: FDA-Public Use
  Company Number: JP-009507513-1606JPN012327

PATIENT
  Age: 41 Year
  Sex: Female

DRUGS (10)
  1. SOVALDI [Suspect]
     Active Substance: SOFOSBUVIR
     Indication: HEPATITIS
     Dosage: DAILY DOSAGE UNKNOWN
     Route: 048
     Dates: start: 20160621
  2. JANUVIA [Concomitant]
     Active Substance: SITAGLIPTIN PHOSPHATE
     Dosage: TOTAL DAILY DOSE 50 (DOSAGE FORM),DIVIDED DOSE FREQUECNY UNKNOWN
     Route: 048
  3. REBETOL [Suspect]
     Active Substance: RIBAVIRIN
     Indication: HEPATITIS
     Dosage: DAILY DOSAGE UNKNOWN
     Route: 048
     Dates: start: 20160621
  4. HALICON [Concomitant]
     Dosage: TOTAL DAILY DOSE 0.15 (DOSAGE FORM), DIVIDED DOSE FREQUENCY UNKNOWN,FORMULATION: POR
     Route: 048
  5. LEVOTOMIN (LEVOMEPROMAZINE MALEATE) [Concomitant]
     Active Substance: LEVOMEPROMAZINE MALEATE
     Dosage: TOTAL DIALY DOSE 25MG, DIVIDED DOSE FREQUENCY UNKNOWN
  6. TETRAMIDE [Concomitant]
     Active Substance: MIANSERIN
     Dosage: TOTAL DAILY DOSE 25MG, DIVIDED DOSE FREQUNCY UNKNOWN
     Route: 048
  7. HALOPERIDOL. [Concomitant]
     Active Substance: HALOPERIDOL
     Dosage: TOTAL DAILY DOSE 3MG, DIVIDED DOSE FREQUENCY UNKNOWN
     Route: 065
  8. DOPAREEL [Concomitant]
     Active Substance: ZOPICLONE
     Dosage: DIVIDED DOSE FREQUENCY UNKNOWN, FORMULATION: POR
     Route: 048
  9. ETIZOLAM [Concomitant]
     Active Substance: ETIZOLAM
     Dosage: TOTAL DIALY DOSE 1MG, DIVIDED DOSE FREQUENCY UNKNOWN, FORMULATION POR
     Route: 048
  10. DESYREL [Concomitant]
     Active Substance: TRAZODONE HYDROCHLORIDE
     Dosage: TOTAL DAILY DOSE 25MG, DIVIDED DOSE FREQUENCY UNKNOWN, FORMULATION: POR
     Route: 048

REACTIONS (1)
  - Psychiatric symptom [Unknown]

NARRATIVE: CASE EVENT DATE: 20160622
